FAERS Safety Report 9601912 (Version 1)
Quarter: 2013Q4

REPORT INFORMATION
  Report Type: Spontaneous
  Country: ES (occurrence: ES)
  Receive Date: 20131007
  Receipt Date: 20131007
  Transmission Date: 20140711
  Serious: Yes (Hospitalization)
  Sender: FDA-Public Use
  Company Number: ES-JNJFOC-20130916151

PATIENT
  Age: 47 Year
  Sex: Male
  Weight: 117 kg

DRUGS (8)
  1. XEPLION [Suspect]
     Indication: PRODUCT USED FOR UNKNOWN INDICATION
     Route: 030
     Dates: start: 20130608, end: 20130802
  2. INVEGA [Suspect]
     Indication: PRODUCT USED FOR UNKNOWN INDICATION
     Route: 048
  3. INVEGA [Suspect]
     Indication: PRODUCT USED FOR UNKNOWN INDICATION
     Route: 048
  4. ESCITALOPRAM [Concomitant]
     Dosage: 2-0-0
     Route: 065
  5. TRANXILIUM [Concomitant]
     Dosage: 0-0-1
     Route: 065
  6. TRANXILIUM [Concomitant]
     Dosage: 1-1-0
     Route: 065
  7. ZYPREXA [Concomitant]
     Dosage: 0-0-1
     Route: 065
  8. LORMETAZEPAM [Concomitant]
     Dosage: AT BED TIME
     Route: 065

REACTIONS (4)
  - Anxiety [Unknown]
  - Psychotic disorder [Unknown]
  - Mood altered [Unknown]
  - Sensory disturbance [Unknown]
